FAERS Safety Report 15113162 (Version 3)
Quarter: 2023Q2

REPORT INFORMATION
  Report Type: Other
  Country: CA (occurrence: CA)
  Receive Date: 20180706
  Receipt Date: 20230426
  Transmission Date: 20230722
  Serious: Yes (Other)
  Sender: FDA-Public Use
  Company Number: CA-002147023-PHHY2014CA079824

PATIENT
  Age: 74 Year
  Sex: Female
  Weight: 48.5 kg

DRUGS (2)
  1. XOLAIR [Suspect]
     Active Substance: OMALIZUMAB
     Indication: Asthma
     Route: 058
     Dates: start: 20060829
  2. XOLAIR [Suspect]
     Active Substance: OMALIZUMAB
     Route: 058

REACTIONS (8)
  - Brain neoplasm [Unknown]
  - Weight decreased [Unknown]
  - Pneumonia [Unknown]
  - Skin atrophy [Unknown]
  - Scratch [Unknown]
  - Purpura senile [Unknown]
  - Skin abrasion [Unknown]
  - Lower respiratory tract infection [Unknown]

NARRATIVE: CASE EVENT DATE: 20140401
